FAERS Safety Report 16393610 (Version 1)
Quarter: 2019Q2

REPORT INFORMATION
  Report Type: Spontaneous
  Country: US (occurrence: US)
  Receive Date: 20190605
  Receipt Date: 20190605
  Transmission Date: 20190711
  Serious: No
  Sender: FDA-Public Use
  Company Number: US-PFIZER INC-2019235071

PATIENT

DRUGS (1)
  1. LYRICA [Suspect]
     Active Substance: PREGABALIN
     Dosage: UNK

REACTIONS (7)
  - Memory impairment [Unknown]
  - Feeling abnormal [Unknown]
  - Tongue movement disturbance [Unknown]
  - Dyskinesia [Unknown]
  - Movement disorder [Unknown]
  - Cerebral disorder [Unknown]
  - Tongue disorder [Unknown]
